FAERS Safety Report 14617118 (Version 1)
Quarter: 2018Q1

REPORT INFORMATION
  Report Type: Spontaneous
  Country: IN (occurrence: IN)
  Receive Date: 20180309
  Receipt Date: 20180309
  Transmission Date: 20180509
  Serious: Yes (Death)
  Sender: FDA-Public Use
  Company Number: PHHY2018IN039421

PATIENT
  Age: 68 Year
  Sex: Female

DRUGS (3)
  1. DENOSUMAB [Concomitant]
     Active Substance: DENOSUMAB
     Indication: PRODUCT USED FOR UNKNOWN INDICATION
     Dosage: 120 MG, Q4W
     Route: 058
     Dates: start: 20180304
  2. VOTRIENT [Suspect]
     Active Substance: PAZOPANIB HYDROCHLORIDE
     Indication: METASTATIC RENAL CELL CARCINOMA
     Dosage: 800 MG, QD
     Route: 048
     Dates: start: 20180302
  3. UDILIV [Concomitant]
     Active Substance: URSODIOL
     Indication: METASTATIC RENAL CELL CARCINOMA
     Dosage: 300 MG, UNK
     Route: 048
     Dates: start: 20180304

REACTIONS (4)
  - Diabetes mellitus [Fatal]
  - Cerebrovascular accident [Fatal]
  - Aspiration [Fatal]
  - Hypertension [Fatal]

NARRATIVE: CASE EVENT DATE: 20180304
